FAERS Safety Report 9246507 (Version 1)
Quarter: 2013Q2

REPORT INFORMATION
  Report Type: Report from Study
  Country: BR (occurrence: BR)
  Receive Date: 20130422
  Receipt Date: 20130422
  Transmission Date: 20140414
  Serious: Yes (Hospitalization, Other)
  Sender: FDA-Public Use
  Company Number: BR-ABBOTT-13P-020-1077908-00

PATIENT
  Age: 50 Year
  Sex: Female
  Weight: 62 kg

DRUGS (9)
  1. HUMIRA [Suspect]
     Indication: RHEUMATOID ARTHRITIS
     Route: 058
     Dates: end: 201302
  2. CITONEURIN [Concomitant]
     Indication: VITAMIN SUPPLEMENTATION
     Route: 048
     Dates: start: 20130328
  3. CITONEURIN [Concomitant]
     Indication: ANAEMIA
  4. LEVOTHYROXINE SODIUM [Concomitant]
     Indication: THYROID HORMONE REPLACEMENT THERAPY
     Route: 048
     Dates: start: 2006
  5. FOLIC ACID [Concomitant]
     Indication: ANAEMIA
     Route: 048
     Dates: start: 2009
  6. DEFLAZACORT [Concomitant]
     Indication: PAIN
     Route: 048
     Dates: start: 2009
  7. METHOTREXATE [Concomitant]
     Indication: RHEUMATOID ARTHRITIS
     Route: 048
     Dates: start: 2009
  8. ANGELIQ [Concomitant]
     Indication: HORMONE THERAPY
     Route: 048
     Dates: start: 2012
  9. PREDNISONE [Concomitant]
     Indication: RHEUMATOID ARTHRITIS
     Route: 048
     Dates: start: 2009

REACTIONS (3)
  - Unevaluable event [Unknown]
  - Dental implantation [Recovered/Resolved]
  - Dental operation [Unknown]
